FAERS Safety Report 25330301 (Version 1)
Quarter: 2025Q2

REPORT INFORMATION
  Report Type: Spontaneous
  Country: CH (occurrence: CH)
  Receive Date: 20250519
  Receipt Date: 20250519
  Transmission Date: 20250716
  Serious: Yes (Hospitalization, Other)
  Sender: MYLAN
  Company Number: None

PATIENT
  Age: 76 Year
  Sex: Male
  Weight: 86.7 kg

DRUGS (3)
  1. LYRICA [Suspect]
     Active Substance: PREGABALIN
     Indication: Epilepsy
     Dosage: 50 MILLIGRAM, BID (IN PAST (NOT SPECIFIED) UP TO 300 MG DAILY)
     Dates: start: 20180101
  2. ZESTRIL [Suspect]
     Active Substance: LISINOPRIL
     Indication: Hypertension
     Dosage: 5 MILLIGRAM, QD
     Dates: end: 20250301
  3. EZETIMIBE [Concomitant]
     Active Substance: EZETIMIBE
     Indication: Dyslipidaemia
     Dosage: 10 MILLIGRAM, QD

REACTIONS (3)
  - Orthostatic hypotension [Recovering/Resolving]
  - Dizziness [Recovering/Resolving]
  - Bradycardia [Unknown]

NARRATIVE: CASE EVENT DATE: 20250225
